FAERS Safety Report 6024297-X (Version None)
Quarter: 2008Q4

REPORT INFORMATION
  Report Type: 
  Country: None (occurrence: None)
  Receive Date: 20081222
  Receipt Date: 20081104
  Transmission Date: 20090506
  Serious: No
  Sender: FDA-Public Use
  Company Number: SPV1-2008-02418

PATIENT
  Age: 38 Year
  Sex: Female
  Weight: 56.7 kg

DRUGS (1)
  1. VYVANSE [Suspect]
     Indication: ATTENTION DEFICIT/HYPERACTIVITY DISORDER
     Dosage: HALF OF A 70MG CAPSULE, 1X/DAY:QD, ORAL
     Route: 048
     Dates: start: 20081030, end: 20081030

REACTIONS (3)
  - BRUXISM [None]
  - INCORRECT DOSE ADMINISTERED [None]
  - VISION BLURRED [None]
